FAERS Safety Report 5727892-8 (Version None)
Quarter: 2008Q2

REPORT INFORMATION
  Report Type: 
  Country: None (occurrence: None)
  Receive Date: 20080505
  Receipt Date: 20080423
  Transmission Date: 20081010
  Serious: Yes (Other)
  Sender: FDA-Public Use
  Company Number: BR-PFIZER INC-2007065176

PATIENT
  Sex: Male
  Weight: 80 kg

DRUGS (5)
  1. GEODON [Suspect]
     Indication: SCHIZOPHRENIA
     Route: 048
     Dates: start: 20070401, end: 20070801
  2. GEODON [Interacting]
     Indication: BIPOLAR DISORDER
  3. ZYPREXA [Interacting]
     Route: 048
  4. RIVOTRIL [Concomitant]
     Route: 048
  5. AKINETON [Concomitant]
     Route: 048

REACTIONS (2)
  - DRUG INTERACTION [None]
  - SPEECH DISORDER [None]
